FAERS Safety Report 5196942-2 (Version None)
Quarter: 2006Q4

REPORT INFORMATION
  Report Type: 
  Country: None (occurrence: None)
  Receive Date: 20061227
  Receipt Date: 20061213
  Transmission Date: 20070319
  Serious: Yes (Other)
  Sender: FDA-Public Use
  Company Number: 2006148151

PATIENT
  Age: 69 Day
  Sex: Male

DRUGS (2)
  1. PHENYTOIN SODIUM CAP [Suspect]
     Dosage: ORAL
     Route: 048
  2. PHENOBARBITAL TAB [Concomitant]

REACTIONS (5)
  - CONDITION AGGRAVATED [None]
  - CONVULSION [None]
  - DRUG LEVEL BELOW THERAPEUTIC [None]
  - PHARMACEUTICAL PRODUCT COMPLAINT [None]
  - WEIGHT INCREASED [None]
